FAERS Safety Report 8846063 (Version 2)
Quarter: 2013Q1

REPORT INFORMATION
  Report Type: Spontaneous
  Country: US (occurrence: US)
  Receive Date: 20121017
  Receipt Date: 20130109
  Transmission Date: 20140127
  Serious: Yes (Other)
  Sender: FDA-Public Use
  Company Number: PHEH2012US020307

PATIENT
  Sex: Female

DRUGS (5)
  1. MYFORTIC [Suspect]
     Indication: RENAL TRANSPLANT
     Dosage: 180 MG, BID
     Route: 048
     Dates: start: 200803, end: 201209
  2. MYFORTIC [Suspect]
     Dosage: 360 MG, TID
     Route: 048
     Dates: end: 201209
  3. PROGRAF [Concomitant]
     Indication: IMMUNOSUPPRESSION
  4. PREDNISONE [Concomitant]
     Indication: IMMUNOSUPPRESSION
  5. DIURETICS [Concomitant]

REACTIONS (4)
  - Renal failure [Unknown]
  - Drug intolerance [Unknown]
  - Pain [Unknown]
  - Nausea [Unknown]
